FAERS Safety Report 6689287-2 (Version None)
Quarter: 2010Q2

REPORT INFORMATION
  Report Type: 
  Country: None (occurrence: None)
  Receive Date: 20100416
  Receipt Date: 20100406
  Transmission Date: 20101027
  Serious: Yes (Other)
  Sender: FDA-Public Use
  Company Number: ACO_00672_2010

PATIENT
  Sex: Female
  Weight: 108.8633 kg

DRUGS (24)
  1. ZANAFLEX [Suspect]
     Indication: MUSCLE SPASMS
     Dosage: 2 MG BID ORAL
     Route: 048
     Dates: start: 20090101
  2. ZYRTEC [Suspect]
     Indication: HYPERSENSITIVITY
     Dosage: 10 MG QD ORAL
     Route: 048
     Dates: start: 20090101
  3. GABAPENTIN [Suspect]
     Indication: DIABETIC NEUROPATHY
     Dosage: TWO CAPSULES, 3X/DAY ORAL
     Route: 048
     Dates: start: 20040101
  4. GABAPENTIN [Suspect]
     Indication: FIBROMYALGIA
     Dosage: TWO CAPSULES, 3X/DAY ORAL
     Route: 048
     Dates: start: 20040101
  5. VICODIN [Suspect]
     Indication: ARTHRALGIA
     Dosage: 7.5 MG/325MG EVERY 4 HOURS ORAL
     Route: 048
     Dates: start: 20060101
  6. VALSARTAN [Suspect]
     Indication: HYPERTENSION
     Dosage: 160 MG, DAILY ORAL
     Route: 048
     Dates: start: 20020101
  7. BUPROPION HCL [Suspect]
     Indication: DEPRESSION
     Dosage: 300 MG, DAILY ORAL
     Route: 048
  8. LOZOL [Suspect]
     Indication: FLUID RETENTION
     Dosage: 1.25 MG, DAILY ORAL
     Route: 048
     Dates: start: 20020101
  9. METFORMIN HCL [Suspect]
     Indication: DIABETES MELLITUS
     Dosage: 500 MG, DAILY ORAL
     Route: 048
  10. JANUMET [Suspect]
     Indication: DIABETES MELLITUS
     Dosage: 50/500 MG DAILY ORAL
     Route: 048
  11. KLONOPIN [Suspect]
     Indication: ANXIETY
     Dosage: 0.5 MG BID ORAL
     Route: 048
  12. KLONOPIN [Suspect]
     Indication: PANIC ATTACK
     Dosage: 0.5 MG BID ORAL
     Route: 048
  13. PRILOSEC [Suspect]
     Indication: GASTROOESOPHAGEAL REFLUX DISEASE
     Dosage: 20 MG BID ORAL
     Route: 048
  14. CARAFATE [Suspect]
     Indication: GASTROOESOPHAGEAL REFLUX DISEASE
     Dosage: 1 G BID ORAL
     Route: 048
  15. AGGRENOX [Suspect]
     Indication: DRUG USE FOR UNKNOWN INDICATION
     Dosage: TWO TIMES A DAY ORAL
     Route: 048
     Dates: start: 20091201
  16. FLONASE [Suspect]
     Indication: HYPERSENSITIVITY
     Dosage: 50 MCG TWO SPRAYS PER NOSTRIL DAILY NASAL
     Route: 045
  17. FLOVENT [Suspect]
     Indication: ASTHMA
     Dosage: 110MCG 2 PUFFS 2X/ RESPIRATORY (INHALATION)
     Route: 055
  18. VENTOLIN [Suspect]
     Indication: ASTHMA
     Dosage: 90MCG TWO PUFFS EVERY TWO HOURS RESPIRATORY (INHALATION)
     Route: 055
  19. IMITREX [Suspect]
     Indication: MIGRAINE
     Dosage: 100 MG, AS NEEDED ORAL
     Route: 048
  20. NITROLINGUAL (NOT SPECIFIED) [Suspect]
     Indication: CHEST PAIN
     Dosage: 0.4MG SPRAY AS NEEDED OTHER
  21. EPIPEN [Suspect]
     Indication: HYPERSENSITIVITY
     Dosage: DF INTRAMUSCULAR
     Route: 030
  22. LORTAB [Suspect]
     Indication: DRUG USE FOR UNKNOWN INDICATION
     Dosage: DF ORAL
     Route: 048
  23. SIMVASTATIN [Suspect]
     Indication: DRUG USE FOR UNKNOWN INDICATION
     Dosage: DF ORAL
     Route: 048
  24. MULTIVITAMINS (NOT SPECIFIED) [Suspect]
     Indication: DRUG USE FOR UNKNOWN INDICATION
     Dosage: DF ORAL
     Route: 048

REACTIONS (15)
  - ANXIETY [None]
  - ARTERIAL DISORDER [None]
  - ARTHRALGIA [None]
  - ASTHMA [None]
  - CARDIAC DISORDER [None]
  - CHEST PAIN [None]
  - DEPRESSION [None]
  - DIABETIC NEUROPATHY [None]
  - FIBROMYALGIA [None]
  - GASTROOESOPHAGEAL REFLUX DISEASE [None]
  - MEMORY IMPAIRMENT [None]
  - MIGRAINE [None]
  - MULTIPLE ALLERGIES [None]
  - MUSCLE SPASMS [None]
  - PANIC ATTACK [None]
